FAERS Safety Report 14830967 (Version 1)
Quarter: 2018Q2

REPORT INFORMATION
  Report Type: Spontaneous
  Country: HK (occurrence: HK)
  Receive Date: 20180430
  Receipt Date: 20180430
  Transmission Date: 20180711
  Serious: Yes (Other)
  Sender: FDA-Public Use
  Company Number: PHHY2018HK073402

PATIENT
  Age: 34 Year
  Sex: Male

DRUGS (4)
  1. REVOLADE [Suspect]
     Active Substance: ELTROMBOPAG
     Indication: APLASTIC ANAEMIA
     Dosage: 100 OT, UNK
     Route: 065
  2. REVOLADE [Suspect]
     Active Substance: ELTROMBOPAG
     Dosage: 175 OT, UNK
     Route: 065
  3. REVOLADE [Suspect]
     Active Substance: ELTROMBOPAG
     Dosage: 150 OT, UNK
     Route: 065
  4. REVOLADE [Suspect]
     Active Substance: ELTROMBOPAG
     Dosage: 300 OT, UNK
     Route: 065

REACTIONS (6)
  - Platelet count decreased [Unknown]
  - Acute myeloid leukaemia [Unknown]
  - White blood cell count abnormal [Unknown]
  - Haemoglobin decreased [Unknown]
  - Neutrophil count decreased [Unknown]
  - Drug ineffective [Unknown]
